FAERS Safety Report 4982617-9 (Version None)
Quarter: 2006Q2

REPORT INFORMATION
  Report Type: 
  Country: None (occurrence: None)
  Receive Date: 20060419
  Receipt Date: 20060409
  Transmission Date: 20061013
  Serious: Yes (Other)
  Sender: FDA-Public Use
  Company Number: 2006049304

PATIENT
  Age: 17 Year
  Sex: Male
  Weight: 86.1834 kg

DRUGS (1)
  1. MECLIZINE [Suspect]
     Indication: MOTION SICKNESS
     Dosage: 2 TABLETS EVERY 1 1/2 TO 2 HOURS, ORAL
     Route: 048
     Dates: start: 20060408, end: 20060408

REACTIONS (3)
  - HALLUCINATION, VISUAL [None]
  - NAUSEA [None]
  - SOMNOLENCE [None]
